FAERS Safety Report 4542206-7 (Version None)
Quarter: 2004Q4

REPORT INFORMATION
  Report Type: 
  Country: None (occurrence: None)
  Receive Date: 20041230
  Receipt Date: 20041222
  Transmission Date: 20050328
  Serious: Yes (Other)
  Sender: FDA-Public Use
  Company Number: GB-BRISTOL-MYERS SQUIBB COMPANY-12807210

PATIENT

DRUGS (5)
  1. METFORMIN HCL [Suspect]
  2. DILTIAZEM HCL [Concomitant]
  3. LOSARTAN [Concomitant]
  4. ASPIRIN [Concomitant]
  5. SIMVASTATIN [Concomitant]

REACTIONS (1)
  - ATRIAL FIBRILLATION [None]
